FAERS Safety Report 4542289-4 (Version None)
Quarter: 2004Q4

REPORT INFORMATION
  Report Type: 
  Country: None (occurrence: None)
  Receive Date: 20041227
  Receipt Date: 20041214
  Transmission Date: 20050328
  Serious: Yes (Hospitalization)
  Sender: FDA-Public Use
  Company Number: 2004-BP-10718BP (1)

PATIENT
  Age: 77 Year
  Sex: Female

DRUGS (5)
  1. COMBIVENT [Suspect]
     Indication: CHRONIC OBSTRUCTIVE AIRWAYS DISEASE
     Dosage: 8 PUF (SEE TEXT, 8 PUFFS DAILY (103 MCG/ 18 MCG) IH
     Route: 055
  2. COMBIVENT [Suspect]
  3. DIOVAN [Concomitant]
  4. CALCIUM + D [Concomitant]
  5. ADVAIR (SERETIDE MITE) [Concomitant]

REACTIONS (4)
  - CERVICAL VERTEBRAL FRACTURE [None]
  - DYSPNOEA [None]
  - FALL [None]
  - MEDICATION ERROR [None]
